FAERS Safety Report 7214652-4 (Version None)
Quarter: 2011Q1

REPORT INFORMATION
  Report Type: 
  Country: None (occurrence: None)
  Receive Date: 20110107
  Receipt Date: 20101214
  Transmission Date: 20110831
  Serious: No
  Sender: FDA-Public Use
  Company Number: US-B.I. PHARMACEUTICALS,INC./RIDGEFIELD-2010-BP-14543BP

PATIENT
  Age: 66 Year
  Sex: Female

DRUGS (11)
  1. ADVAIR [Concomitant]
     Indication: ASTHMA
     Dosage: 250 ML
     Route: 048
     Dates: start: 20040101
  2. XANAX [Concomitant]
     Indication: ANXIETY
     Route: 048
     Dates: start: 20070101
  3. NORVASC [Concomitant]
     Indication: CARDIAC DISORDER
     Dates: start: 20000101
  4. FERROSOL [Concomitant]
     Indication: BLOOD IRON DECREASED
     Route: 048
     Dates: start: 20070101
  5. SINGULAIR [Concomitant]
     Indication: ASTHMA
     Dates: start: 20060101
  6. PRILOSEC [Concomitant]
     Indication: GASTROOESOPHAGEAL REFLUX DISEASE
     Dates: start: 20030101
  7. ZOCOR [Concomitant]
     Indication: BLOOD CHOLESTEROL INCREASED
     Dosage: 10 MG
     Route: 048
     Dates: start: 20070101
  8. HYDROCHLOROTHIAZIDE [Concomitant]
     Indication: HYPERTENSION
     Dosage: 25 MG
     Route: 048
     Dates: start: 20000101
  9. BONIVA [Concomitant]
     Indication: OSTEOPOROSIS
     Dosage: 150 MG ONCE A MONTH
     Route: 048
     Dates: start: 20060101
  10. ASPIRIN [Concomitant]
     Indication: CARDIAC DISORDER
     Dosage: 81 MG
     Route: 048
     Dates: start: 20070101
  11. MICARDIS [Suspect]
     Indication: CARDIAC DISORDER
     Dosage: 40 MG
     Route: 048
     Dates: start: 20080901

REACTIONS (16)
  - RECTAL HAEMORRHAGE [None]
  - FAECES DISCOLOURED [None]
  - EPISTAXIS [None]
  - PRURITUS [None]
  - FATIGUE [None]
  - ATRIAL FIBRILLATION [None]
  - COUGH [None]
  - ACNE [None]
  - ABDOMINAL PAIN UPPER [None]
  - ASTHENIA [None]
  - HYPOAESTHESIA ORAL [None]
  - WHEEZING [None]
  - DIZZINESS [None]
  - CHEST PAIN [None]
  - DIARRHOEA [None]
  - OROPHARYNGEAL PAIN [None]
